FAERS Safety Report 8922930 (Version 1)
Quarter: 2012Q4

REPORT INFORMATION
  Report Type: 
  Country: US (occurrence: US)
  Receive Date: 20121123
  Receipt Date: 20121123
  Transmission Date: 20130627
  Serious: No
  Sender: FDA-Public Use
  Company Number: US-BAYER-2012-120752

PATIENT
  Age: 55 Year
  Sex: Female
  Weight: 70.75 kg

DRUGS (2)
  1. ALEVE CAPLET/TABLET,MIDOL EXTENDED RELIEF CAPLET [Suspect]
     Dosage: 2 DF, PRN
     Route: 048
  2. BAYER ASPIRIN REGIMEN ADULT LOW STRENGTH [Suspect]
     Indication: MYOCARDIAL INFARCT PROPHYLAXIS
     Dosage: 1 DF, QD
     Route: 048
     Dates: start: 200611

REACTIONS (2)
  - Incorrect drug administration duration [None]
  - Abdominal discomfort [None]
